FAERS Safety Report 17171511 (Version 4)
Quarter: 2020Q2

REPORT INFORMATION
  Report Type: Report from Study
  Country: CA (occurrence: CA)
  Receive Date: 20191218
  Receipt Date: 20200410
  Transmission Date: 20200713
  Serious: Yes (Hospitalization, Other)
  Sender: FDA-Public Use
  Company Number: CA-JNJFOC-20191214204

PATIENT
  Age: 10 Year
  Sex: Female
  Weight: 43.3 kg

DRUGS (2)
  1. REMICADE [Suspect]
     Active Substance: INFLIXIMAB
     Route: 042
  2. REMICADE [Suspect]
     Active Substance: INFLIXIMAB
     Indication: COLITIS ULCERATIVE
     Dosage: ON 18-FEB-2020, THE PATIENT RECEIVED HER 41TH INFUSION.
     Route: 042
     Dates: start: 20160712

REACTIONS (8)
  - Abdominal pain [Recovered/Resolved]
  - Haematemesis [Recovered/Resolved]
  - Melaena [Recovered/Resolved]
  - Abscess [Recovered/Resolved]
  - Rectal abscess [Recovering/Resolving]
  - Nausea [Recovered/Resolved]
  - Fistula [Recovering/Resolving]
  - Abscess limb [Unknown]

NARRATIVE: CASE EVENT DATE: 201912
